FAERS Safety Report 5241254-1 (Version None)
Quarter: 2007Q1

REPORT INFORMATION
  Report Type: 
  Country: None (occurrence: None)
  Receive Date: 20070212
  Receipt Date: 20070212
  Transmission Date: 20070707
  Serious: Yes (Other)
  Sender: FDA-Public Use
  Company Number: None

PATIENT
  Sex: Male
  Weight: 85.2762 kg

DRUGS (3)
  1. FLUCONAZOLE [Suspect]
     Indication: FUNGAL INFECTION
     Dates: start: 20070126, end: 20070213
  2. FLUCONAZOLE [Suspect]
     Indication: LIP DISORDER
     Dates: start: 20070126, end: 20070213
  3. FLUCONAZOLE [Suspect]
     Indication: NASAL DISORDER
     Dates: start: 20070126, end: 20070213

REACTIONS (12)
  - HYPERAESTHESIA [None]
  - LIP SWELLING [None]
  - OEDEMA MOUTH [None]
  - PAIN OF SKIN [None]
  - PENILE BLISTER [None]
  - PENIS DISORDER [None]
  - PRURITUS [None]
  - RASH [None]
  - SKIN DISCOLOURATION [None]
  - SKIN EXFOLIATION [None]
  - SWOLLEN TONGUE [None]
  - URTICARIA [None]
